FAERS Safety Report 5333170-1 (Version None)
Quarter: 2007Q2

REPORT INFORMATION
  Report Type: 
  Country: None (occurrence: None)
  Receive Date: 20070524
  Receipt Date: 20070515
  Transmission Date: 20071010
  Serious: Yes (Other)
  Sender: FDA-Public Use
  Company Number: PHEH2007US07467

PATIENT
  Age: 49 Year
  Sex: Female

DRUGS (2)
  1. LAMISIL [Suspect]
     Route: 048
  2. KEPPRA [Concomitant]

REACTIONS (1)
  - CONVULSION [None]
